FAERS Safety Report 7490461-6 (Version None)
Quarter: 2011Q2

REPORT INFORMATION
  Report Type: 
  Country: None (occurrence: None)
  Receive Date: 20110519
  Receipt Date: 20110516
  Transmission Date: 20111010
  Serious: Yes (Other)
  Sender: FDA-Public Use
  Company Number: US-BAYER-2011-042270

PATIENT
  Sex: Female

DRUGS (5)
  1. YASMIN [Suspect]
     Dosage: UNK
     Dates: start: 20080601, end: 20090901
  2. DROSPIRENONE AND ETHINYL ESTRADIOL [Suspect]
     Indication: PRODUCT USED FOR UNKNOWN INDICATION
     Dosage: UNK
     Dates: start: 20090201, end: 20090201
  3. YASMIN [Suspect]
     Dosage: UNK
     Dates: start: 20051001, end: 20070401
  4. YASMIN [Suspect]
     Indication: PRODUCT USED FOR UNKNOWN INDICATION
     Dosage: UNK
     Dates: start: 20020501, end: 20020801
  5. YASMIN [Suspect]
     Dosage: UNK
     Dates: start: 20040901, end: 20050101

REACTIONS (6)
  - THROMBOSIS [None]
  - EMOTIONAL DISTRESS [None]
  - ANXIETY [None]
  - ISCHAEMIA [None]
  - INJURY [None]
  - PAIN [None]
